FAERS Safety Report 4293994-9 (Version None)
Quarter: 2004Q1

REPORT INFORMATION
  Report Type: 
  Country: None (occurrence: None)
  Receive Date: 20040212
  Receipt Date: 20040116
  Transmission Date: 20041129
  Serious: Yes (Death)
  Sender: FDA-Public Use
  Company Number: WAES 0402GBR00039

PATIENT
  Age: 75 Year
  Sex: Male

DRUGS (1)
  1. MONTELUKAST SODIUM [Suspect]
     Route: 048
     Dates: start: 20000720, end: 20001201

REACTIONS (2)
  - CREUTZFELDT-JAKOB DISEASE [None]
  - GLOMERULONEPHRITIS PROLIFERATIVE [None]
